FAERS Safety Report 7222310-5 (Version None)
Quarter: 2011Q1

REPORT INFORMATION
  Report Type: 
  Country: None (occurrence: None)
  Receive Date: 20110103
  Receipt Date: 20101217
  Transmission Date: 20110831
  Serious: Yes (Other)
  Sender: FDA-Public Use
  Company Number: 1000017949

PATIENT
  Age: 83 Year
  Sex: Male

DRUGS (1)
  1. ESCITALOPRAM [Suspect]
     Indication: ANXIETY
     Dosage: 5 MG (5 MG, 1 IN 1 D), ORAL
     Route: 048

REACTIONS (15)
  - ALOPECIA [None]
  - SWOLLEN TONGUE [None]
  - LIP SWELLING [None]
  - RASH [None]
  - DIZZINESS [None]
  - OROPHARYNGEAL BLISTERING [None]
  - RHINORRHOEA [None]
  - ABNORMAL DREAMS [None]
  - DYSGEUSIA [None]
  - DECREASED APPETITE [None]
  - PRURITUS [None]
  - OPTIC NERVE DISORDER [None]
  - INSOMNIA [None]
  - MYALGIA [None]
  - WEIGHT DECREASED [None]
